FAERS Safety Report 4890980-2 (Version None)
Quarter: 2006Q1

REPORT INFORMATION
  Report Type: 
  Country: None (occurrence: None)
  Receive Date: 20060123
  Receipt Date: 20060104
  Transmission Date: 20060701
  Serious: Yes (Other)
  Sender: FDA-Public Use
  Company Number: US200601000436

PATIENT
  Age: 63 Year
  Sex: Female

DRUGS (1)
  1. PROZAC [Suspect]

REACTIONS (5)
  - COLON OPERATION [None]
  - DRUG DOSE OMISSION [None]
  - ECONOMIC PROBLEM [None]
  - NEOPLASM MALIGNANT [None]
  - SURGERY [None]
